FAERS Safety Report 4945013-6 (Version None)
Quarter: 2006Q1

REPORT INFORMATION
  Report Type: 
  Country: None (occurrence: None)
  Receive Date: 20060117
  Receipt Date: 20050623
  Transmission Date: 20060701
  Serious: Yes (Hospitalization)
  Sender: FDA-Public Use
  Company Number: A03200501915

PATIENT
  Age: 42 Year
  Sex: Female
  Weight: 63.49 kg

DRUGS (23)
  1. PLAVIX [Suspect]
     Indication: MYOCARDIAL INFARCTION
     Dosage: 75 MG QD - ORAL
     Route: 048
     Dates: start: 20020201, end: 20051201
  2. PLAVIX [Suspect]
     Indication: MYOCARDIAL INFARCTION
     Dosage: 75 MG QD - ORAL
     Route: 048
     Dates: start: 20050613, end: 20050601
  3. ACETYLSALICYLIC ACID SRT [Concomitant]
  4. TORSEMIDE [Concomitant]
  5. AZATHIOPRINE [Concomitant]
  6. ISOSORBIDE MONONITRATE [Concomitant]
  7. HYDROXYCHLOROQUINE SULFATE [Concomitant]
  8. FLUVASTATIN SOIDUM [Concomitant]
  9. RALOXIFENE HCL [Concomitant]
  10. PREDNISONE [Concomitant]
  11. LANSOPRAZOLE [Concomitant]
  12. ESCITALOPRAM OXALATE [Concomitant]
  13. ALPRAZOLAM [Concomitant]
  14. POTASSIUM [Concomitant]
  15. FISH OIL [Concomitant]
  16. VITAMIN D [Concomitant]
  17. CRANBERRY [Concomitant]
  18. BISACODYL [Concomitant]
  19. LANTUS [Concomitant]
  20. INSULIN [Concomitant]
  21. DARVOCET [Concomitant]
  22. HYDROCODONE [Concomitant]
  23. VALACYCLOVIR HCL [Concomitant]

REACTIONS (3)
  - ANGINA PECTORIS [None]
  - PAIN [None]
  - SKIN DISCOLOURATION [None]
